FAERS Safety Report 6894880-8 (Version None)
Quarter: 2010Q3

REPORT INFORMATION
  Report Type: 
  Country: None (occurrence: None)
  Receive Date: 20100728
  Receipt Date: 20100713
  Transmission Date: 20110219
  Serious: Yes (Death, Other)
  Sender: FDA-Public Use
  Company Number: NC-ACCORD-005748

PATIENT
  Age: 26 Year
  Sex: Female

DRUGS (2)
  1. MYCOPHENOLATE MOFETIL [Suspect]
     Indication: LUPUS NEPHRITIS
  2. PREDNISOLONE [Suspect]
     Indication: LUPUS NEPHRITIS

REACTIONS (4)
  - CELLULITIS [None]
  - OFF LABEL USE [None]
  - PSEUDOMONAS INFECTION [None]
  - SEPTIC SHOCK [None]
